FAERS Safety Report 13328206 (Version 1)
Quarter: 2017Q1

REPORT INFORMATION
  Report Type: Spontaneous
  Country: US (occurrence: US)
  Receive Date: 20170313
  Receipt Date: 20170313
  Transmission Date: 20170428
  Serious: No
  Sender: FDA-Public Use
  Company Number: US-JNJFOC-20161203867

PATIENT
  Sex: Female

DRUGS (2)
  1. WOMENS ROGAINE [Suspect]
     Active Substance: MINOXIDIL
     Indication: ALOPECIA
     Dosage: HALF A BOTTLE
     Route: 061
     Dates: start: 20161202
  2. WOMENS ROGAINE [Suspect]
     Active Substance: MINOXIDIL
     Indication: ALOPECIA
     Dosage: DOSAGE ACCIDENTLY POUR HALF A BOTTLE
     Route: 061

REACTIONS (2)
  - Accidental overdose [Unknown]
  - Headache [Unknown]

NARRATIVE: CASE EVENT DATE: 20161202
